FAERS Safety Report 9669026 (Version 1)
Quarter: 2013Q4

REPORT INFORMATION
  Report Type: Spontaneous
  Country: US (occurrence: US)
  Receive Date: 20131105
  Receipt Date: 20131105
  Transmission Date: 20140711
  Serious: No
  Sender: FDA-Public Use
  Company Number: US-PFIZER INC-2013312176

PATIENT
  Age: 63 Year
  Sex: Male
  Weight: 104.3 kg

DRUGS (4)
  1. CAMPTOSAR [Suspect]
     Indication: NEOPLASM MALIGNANT
     Dosage: 360/500 MG/ML, UNK
  2. OXALIPLATIN [Suspect]
     Indication: NEOPLASM MALIGNANT
     Dosage: 171/250 MG/ML, UNK
  3. FLUOROURACIL [Concomitant]
     Indication: NEOPLASM MALIGNANT
     Dosage: UNK
  4. LEUCOVORIN [Concomitant]
     Indication: NEOPLASM MALIGNANT
     Dosage: UNK

REACTIONS (4)
  - Muscle twitching [Recovered/Resolved]
  - Aphasia [Recovered/Resolved]
  - White blood cell count increased [Unknown]
  - Red blood cell count decreased [Unknown]
